FAERS Safety Report 11526142 (Version 1)
Quarter: 2015Q3

REPORT INFORMATION
  Report Type: Spontaneous
  Country: US (occurrence: US)
  Receive Date: 20150918
  Receipt Date: 20150918
  Transmission Date: 20151125
  Serious: Yes (Other)
  Sender: FDA-Public Use
  Company Number: US-TAKEDA-TPA2012A10130

PATIENT

DRUGS (7)
  1. METFORMIN [Concomitant]
     Active Substance: METFORMIN HYDROCHLORIDE
  2. DIABETA [Concomitant]
     Active Substance: GLYBURIDE
     Dates: start: 20060506, end: 20071129
  3. DIABETA [Concomitant]
     Active Substance: GLYBURIDE
     Dates: start: 20100327, end: 20110725
  4. GLUCOTROL [Concomitant]
     Active Substance: GLIPIZIDE
  5. METFORMIN [Concomitant]
     Active Substance: METFORMIN HYDROCHLORIDE
     Dates: start: 20111201, end: 20120312
  6. ACTOS [Suspect]
     Active Substance: PIOGLITAZONE HYDROCHLORIDE
     Indication: TYPE 2 DIABETES MELLITUS
     Dates: start: 20041218, end: 20110731
  7. GLUCOTROL [Concomitant]
     Active Substance: GLIPIZIDE
     Dates: start: 20120114, end: 20120411

REACTIONS (1)
  - Bladder cancer [Unknown]

NARRATIVE: CASE EVENT DATE: 20120307
